FAERS Safety Report 7492543-1 (Version None)
Quarter: 2011Q2

REPORT INFORMATION
  Report Type: 
  Country: None (occurrence: None)
  Receive Date: 20110519
  Receipt Date: 20110516
  Transmission Date: 20111010
  Serious: Yes (Other)
  Sender: FDA-Public Use
  Company Number: JP-PFIZER INC-2010168510

PATIENT
  Age: 73 Year
  Sex: Male
  Weight: 69.7 kg

DRUGS (13)
  1. ZYLORIC ^FAES^ [Concomitant]
     Indication: HYPERURICAEMIA
     Dosage: 0.5 DF, 1X/DAY
     Route: 048
  2. CRESTOR [Concomitant]
     Indication: HYPERCHOLESTEROLAEMIA
     Dosage: 1 DF, 1X/DAY
     Route: 048
  3. ADALAT CC [Concomitant]
     Dosage: 2 DF, 2X/DAY
     Route: 048
  4. PLAVIX [Concomitant]
     Dosage: 1 DF, 1X/DAY
     Route: 048
  5. LOSARTAN POTASSIUM AND HYDROCHLOROTHIAZIDE [Concomitant]
     Indication: HYPERTENSION
     Dosage: 1 DF, 1X/DAY
     Route: 048
  6. LANSOPRAZOLE [Concomitant]
     Indication: GASTRIC ULCER
     Dosage: 1 DF, 1X/DAY
     Route: 048
  7. INSULIN DETEMIR [Concomitant]
     Indication: TYPE 2 DIABETES MELLITUS
     Dosage: 14 IU, 1X/DAY
     Route: 058
  8. WARFARIN [Concomitant]
     Indication: ANGINA PECTORIS
     Dosage: 2.5 DF, 1X/DAY
     Route: 048
  9. LYRICA [Suspect]
     Indication: DIABETIC NEUROPATHY
     Dosage: 75 MG, 2X/DAY
     Route: 048
     Dates: start: 20101112, end: 20101123
  10. CARVEDILOL [Concomitant]
     Dosage: 1.5 DF, 1X/DAY
     Route: 048
  11. HUMALOG [Concomitant]
     Indication: TYPE 2 DIABETES MELLITUS
     Dosage: 18 UNITS DAILY
     Route: 058
  12. ASPIRIN [Concomitant]
     Indication: ANGINA PECTORIS
     Dosage: 1 DF, 1X/DAY
     Route: 048
  13. INSULIN [Concomitant]
     Dosage: UNK

REACTIONS (3)
  - FACE OEDEMA [None]
  - OEDEMA PERIPHERAL [None]
  - PLEURAL EFFUSION [None]
